FAERS Safety Report 14141148 (Version 2)
Quarter: 2018Q3

REPORT INFORMATION
  Report Type: Spontaneous
  Country: US (occurrence: US)
  Receive Date: 20171030
  Receipt Date: 20180918
  Transmission Date: 20181010
  Serious: Yes (Hospitalization, Other)
  Sender: FDA-Public Use
  Company Number: US-PFIZER INC-2017464725

PATIENT
  Age: 62 Year
  Sex: Male
  Weight: 212 kg

DRUGS (18)
  1. NYSTATIN. [Concomitant]
     Active Substance: NYSTATIN
     Dosage: UNK
  2. LIPITOR [Concomitant]
     Active Substance: ATORVASTATIN CALCIUM
     Dosage: 20 MG, DAILY
  3. INLYTA [Suspect]
     Active Substance: AXITINIB
     Indication: METASTATIC RENAL CELL CARCINOMA
     Dosage: 3 MG, 2X/DAY
     Dates: start: 2016, end: 201709
  4. CLONIDINE. [Concomitant]
     Active Substance: CLONIDINE
     Dosage: 0.1 MG, 3X/DAY (1 TAB BY MOUTH EVERY 8 HOURS)
     Route: 048
  5. GLUCOVANCE [Concomitant]
     Active Substance: GLYBURIDE\METFORMIN HYDROCHLORIDE
     Dosage: 2 DF, 2X/DAY [GLIBENCLAMIDE 5]/[ METFORMIN HYDROCHLORIDE 500]
  6. FUROSEMIDE. [Concomitant]
     Active Substance: FUROSEMIDE
     Dosage: 40 MG, AS NEEDED
  7. HYDROCODONE BITARTRATE AND ACETAMINOPHEN [Concomitant]
     Active Substance: ACETAMINOPHEN\HYDROCODONE BITARTRATE
     Dosage: UNK UNK, AS NEEDED [HYDROCODONE BITARTRATE 10 MG]/[PARACETAMOL 325 MG]
  8. LEVOTHYROXINE. [Concomitant]
     Active Substance: LEVOTHYROXINE
     Dosage: 200 MG, DAILY
  9. COUMADIN [Concomitant]
     Active Substance: WARFARIN SODIUM
     Dosage: 10 MG, 2X/WEEK (10MG SAT AND SUN)
  10. COUMADIN [Concomitant]
     Active Substance: WARFARIN SODIUM
     Dosage: 15 MG, UNK (15MG MON? FRI)
  11. METOPROLOL SUCCINATE. [Concomitant]
     Active Substance: METOPROLOL SUCCINATE
     Dosage: 200 MG, DAILY
  12. TRIAMCINOLONE ACETONIDE. [Concomitant]
     Active Substance: TRIAMCINOLONE ACETONIDE
     Dosage: UNK UNK, 2X/DAY
  13. ASPRIN [Concomitant]
     Active Substance: ASPIRIN
     Dosage: 81 MG, DAILY (LOW DOSE ASPIRIN)
  14. CARDIZEM CD [Concomitant]
     Active Substance: DILTIAZEM HYDROCHLORIDE
     Dosage: 360 MG, DAILY
  15. ACTOS [Concomitant]
     Active Substance: PIOGLITAZONE HYDROCHLORIDE
     Dosage: 45 MG, DAILY
  16. ALLOPURINOL. [Concomitant]
     Active Substance: ALLOPURINOL
     Dosage: 100 MG, DAILY
  17. VASOTEC [ENALAPRIL MALEATE] [Concomitant]
     Dosage: 10 MG, DAILY
  18. FLEXERIL [CEFIXIME] [Concomitant]
     Dosage: 10 MG, AS NEEDED

REACTIONS (5)
  - Obstruction gastric [Unknown]
  - Renal failure [Unknown]
  - Blood glucose decreased [Unknown]
  - Rash [Unknown]
  - Skin fissures [Unknown]
